FAERS Safety Report 21660650 (Version 3)
Quarter: 2022Q4

REPORT INFORMATION
  Report Type: Spontaneous
  Country: US (occurrence: US)
  Receive Date: 20221130
  Receipt Date: 20221220
  Transmission Date: 20230113
  Serious: No
  Sender: FDA-Public Use
  Company Number: US-TORRENT-00012088

PATIENT
  Age: 60 Year
  Sex: Male
  Weight: 113 kg

DRUGS (3)
  1. ZOLPIDEM TARTRATE [Suspect]
     Active Substance: ZOLPIDEM TARTRATE
     Indication: Insomnia
     Dosage: 10 MG ONCE DAILY;3 WEEKS AGO MAYBE A MONTH
     Route: 060
  2. ADVIL [Concomitant]
     Active Substance: IBUPROFEN
     Indication: Pain
     Dosage: 400 MG 4 TO 5 TIMES A DAY
     Route: 048
  3. VITAMIN D3 [Concomitant]
     Active Substance: CHOLECALCIFEROL
     Indication: Product used for unknown indication
     Dosage: 125 MG, ORALLY ONCE A DAY
     Route: 048

REACTIONS (3)
  - Product taste abnormal [Unknown]
  - Product preparation issue [Unknown]
  - Product dispensing error [Unknown]
